FAERS Safety Report 13998979 (Version 1)
Quarter: 2017Q3

REPORT INFORMATION
  Report Type: Spontaneous
  Country: US (occurrence: US)
  Receive Date: 20170922
  Receipt Date: 20170922
  Transmission Date: 20171128
  Serious: Yes (Disabling)
  Sender: FDA-Public Use
  Company Number: None

PATIENT
  Age: 74 Year
  Sex: Female
  Weight: 90 kg

DRUGS (4)
  1. BENAZAPRIL [Concomitant]
  2. VITAMINS [Concomitant]
     Active Substance: VITAMINS
  3. LEVOFLOXACIN 500 MG [Suspect]
     Active Substance: LEVOFLOXACIN
     Indication: ANIMAL BITE
     Dosage: ?          QUANTITY:10 TABLET(S);?
     Route: 048
     Dates: start: 20161228, end: 20170106
  4. ATENOLOL. [Concomitant]
     Active Substance: ATENOLOL

REACTIONS (7)
  - Cardiac disorder [None]
  - Musculoskeletal pain [None]
  - Tendon injury [None]
  - Ligament injury [None]
  - Eye injury [None]
  - Arthralgia [None]
  - Renal pain [None]

NARRATIVE: CASE EVENT DATE: 20161228
